FAERS Safety Report 24000292 (Version 1)
Quarter: 2024Q2

REPORT INFORMATION
  Report Type: Spontaneous
  Country: US (occurrence: US)
  Receive Date: 20240621
  Receipt Date: 20240621
  Transmission Date: 20240715
  Serious: No
  Sender: FDA-Public Use
  Company Number: US-PFIZER INC-202400196962

PATIENT
  Sex: Female

DRUGS (2)
  1. DEPO-PROVERA [Suspect]
     Active Substance: MEDROXYPROGESTERONE ACETATE
     Indication: Contraception
     Dosage: EVERY 3 MONTHS
  2. DEPO-PROVERA [Suspect]
     Active Substance: MEDROXYPROGESTERONE ACETATE
     Indication: Menstrual cycle management

REACTIONS (5)
  - Menstrual disorder [Unknown]
  - Hormone level abnormal [Unknown]
  - Intentional product use issue [Unknown]
  - Off label use [Unknown]
  - Drug effective for unapproved indication [Unknown]
